FAERS Safety Report 24436948 (Version 1)
Quarter: 2024Q4

REPORT INFORMATION
  Report Type: Spontaneous
  Country: DE (occurrence: DE)
  Receive Date: 20241015
  Receipt Date: 20241015
  Transmission Date: 20250114
  Serious: Yes (Hospitalization)
  Sender: MYLAN
  Company Number: DE-MYLANLABS-2024M1091520

PATIENT
  Age: 57 Year
  Sex: Male

DRUGS (12)
  1. PREDNISOLONE [Suspect]
     Active Substance: PREDNISOLONE
     Indication: Pachymeningitis
     Dosage: 2 MILLIGRAM, QD
     Route: 048
  2. PREDNISOLONE [Suspect]
     Active Substance: PREDNISOLONE
     Dosage: 20 MILLIGRAM, QD, DOSE TITRATED UP
     Route: 048
  3. METHOTREXATE [Suspect]
     Active Substance: METHOTREXATE
     Indication: Pachymeningitis
     Dosage: UNK,RECEIVED UP TO 20MG, QW
     Route: 048
  4. TRIAMCINOLONE [Suspect]
     Active Substance: TRIAMCINOLONE
     Indication: Pachymeningitis
     Dosage: 40 MILLIGRAM, TID
     Route: 037
  5. MYCOPHENOLATE MOFETIL [Suspect]
     Active Substance: MYCOPHENOLATE MOFETIL
     Indication: Pachymeningitis
     Dosage: 200 MILLIGRAM, QD
     Route: 065
  6. INFLIXIMAB [Suspect]
     Active Substance: INFLIXIMAB
     Indication: Pachymeningitis
     Dosage: 375 MILLIGRAM, RECEIVED EIGHT TIMES
     Route: 042
  7. RITUXIMAB [Suspect]
     Active Substance: RITUXIMAB
     Indication: Pachymeningitis
     Dosage: 2000 MILLIGRAM, RECEIVED TWO TIMES
     Route: 042
  8. METHYLPREDNISOLONE [Suspect]
     Active Substance: METHYLPREDNISOLONE
     Indication: Pachymeningitis
     Dosage: 3 GRAM, RECEIVED PULSE THERAPY TWO TIMES
     Route: 042
  9. DEXAMETHASONE [Suspect]
     Active Substance: DEXAMETHASONE
     Indication: Pachymeningitis
     Dosage: 4 MILLIGRAM, INSTILLED FOUR TIMES OVER THE PERIOD OF 2 WEEKS
     Route: 065
  10. RITUXIMAB [Concomitant]
     Active Substance: RITUXIMAB
     Indication: Pachymeningitis
     Dosage: 25 MILLIGRAM
     Route: 037
  11. CYTARABINE [Concomitant]
     Active Substance: CYTARABINE
     Indication: Pachymeningitis
     Dosage: 40 MILLIGRAM, INSTILLED FOUR TIMES OVER THE PERIOD OF 2 WEEKS
     Route: 065
  12. METHOTREXATE [Concomitant]
     Active Substance: METHOTREXATE
     Indication: Pachymeningitis
     Dosage: 15 MILLIGRAM, INSTILLED FOUR TIMES OVER THE PERIOD OF 2 WEEKS
     Route: 065

REACTIONS (2)
  - Substance-induced psychotic disorder [Recovered/Resolved]
  - Drug ineffective [Unknown]
